FAERS Safety Report 9206895 (Version 2)
Quarter: 2013Q4

REPORT INFORMATION
  Report Type: Spontaneous
  Country: US (occurrence: US)
  Receive Date: 20130403
  Receipt Date: 20131101
  Transmission Date: 20140711
  Serious: Yes (Hospitalization, Disabling, Other)
  Sender: FDA-Public Use
  Company Number: US-BAYER-2013-039408

PATIENT
  Age: 35 Year
  Sex: Female
  Weight: 94 kg

DRUGS (7)
  1. YAZ [Suspect]
     Dosage: UNK
     Dates: start: 2005, end: 200911
  2. YASMIN [Suspect]
     Dosage: UNK
     Dates: start: 2005, end: 200911
  3. OCELLA [Suspect]
     Dosage: UNK
     Dates: start: 2005, end: 200911
  4. ZANTAC [Concomitant]
     Indication: ABDOMINAL PAIN UPPER
  5. CLARITIN [Concomitant]
     Dosage: UNK, PRN
  6. ELAVIL [Concomitant]
     Dosage: 10 MG, 1 Q HS
     Route: 048
  7. RANITIDINE [Concomitant]

REACTIONS (8)
  - Gallbladder disorder [None]
  - Cholecystitis chronic [None]
  - Injury [None]
  - Pain [None]
  - Deformity [None]
  - Emotional distress [None]
  - Anxiety [None]
  - Anhedonia [None]
